FAERS Safety Report 8275949-2 (Version None)
Quarter: 2012Q2

REPORT INFORMATION
  Report Type: 
  Country: None (occurrence: None)
  Receive Date: 20120412
  Receipt Date: 20120410
  Transmission Date: 20120825
  Serious: No
  Sender: FDA-Public Use
  Company Number: US-PFIZER INC-2012089948

PATIENT
  Sex: Male
  Weight: 127 kg

DRUGS (3)
  1. COREG [Concomitant]
     Indication: HYPERTENSION
     Dosage: 20 MG, DAILY
  2. GENOTROPIN [Suspect]
     Indication: HORMONE THERAPY
     Dosage: 0.4 MG, DAILY
     Dates: start: 20110101, end: 20110101
  3. SYNTHROID [Concomitant]
     Indication: THYROID DISORDER
     Dosage: 1.37 UG, DAILY

REACTIONS (2)
  - LIP SWELLING [None]
  - GINGIVAL DISORDER [None]
